FAERS Safety Report 8083972-6 (Version None)
Quarter: 2012Q1

REPORT INFORMATION
  Report Type: 
  Country: None (occurrence: None)
  Receive Date: 20120128
  Receipt Date: 20110119
  Transmission Date: 20120608
  Serious: No
  Sender: FDA-Public Use
  Company Number: US-ABBOTT-11P-163-0699278-00

PATIENT
  Age: 47 Year
  Sex: Female

DRUGS (3)
  1. AMOXICILLIN [Interacting]
     Indication: PHARYNGITIS STREPTOCOCCAL
  2. PENICILLIN [Interacting]
     Indication: PHARYNGITIS STREPTOCOCCAL
  3. HUMIRA [Suspect]
     Indication: RHEUMATOID ARTHRITIS
     Dates: start: 20100901

REACTIONS (3)
  - VOMITING [None]
  - PHARYNGITIS STREPTOCOCCAL [None]
  - DRUG INTERACTION [None]
